FAERS Safety Report 16883770 (Version 1)
Quarter: 2019Q4

REPORT INFORMATION
  Report Type: Spontaneous
  Country: US (occurrence: US)
  Receive Date: 20191004
  Receipt Date: 20191004
  Transmission Date: 20200122
  Serious: No
  Sender: FDA-Public Use
  Company Number: US-LUPIN PHARMACEUTICALS INC.-2019-06108

PATIENT
  Sex: Male
  Weight: 75.74 kg

DRUGS (1)
  1. SUPRAX [Suspect]
     Active Substance: CEFIXIME
     Indication: CYSTITIS
     Dosage: 400 MILLIGRAM, QD
     Route: 048

REACTIONS (1)
  - Haematuria [Recovered/Resolved]
